FAERS Safety Report 5177397-0 (Version None)
Quarter: 2006Q4

REPORT INFORMATION
  Report Type: 
  Country: None (occurrence: None)
  Receive Date: 20061218
  Receipt Date: 20061107
  Transmission Date: 20070319
  Serious: Yes (Death, Other)
  Sender: FDA-Public Use
  Company Number: US-PURDUE-USA_2006_0025631

PATIENT
  Age: 20 Year
  Sex: Male
  Weight: 73 kg

DRUGS (6)
  1. OXYCONTIN [Suspect]
     Indication: DRUG ABUSER
     Dosage: UNK, UNK
  2. ETHANOL [Suspect]
     Indication: DRUG ABUSER
     Dosage: UNK, UNK
  3. ACETAMINOPHEN [Suspect]
     Indication: DRUG ABUSER
     Dosage: UNK, UNK
  4. PROPOXYPHENE HYDROCHLORIDE [Suspect]
     Indication: DRUG ABUSER
     Dosage: UNK, UNK
  5. MORPHINE SULFATE [Suspect]
     Indication: DRUG ABUSER
     Dosage: UNK, UNK
  6. ALPRAZOLAM [Suspect]
     Indication: DRUG ABUSER
     Dosage: UNK, UNK

REACTIONS (5)
  - CARDIAC DISORDER [None]
  - DRUG DEPENDENCE [None]
  - HEPATIC CIRRHOSIS [None]
  - MULTIPLE DRUG OVERDOSE ACCIDENTAL [None]
  - SUBSTANCE ABUSE [None]
